FAERS Safety Report 13479372 (Version 2)
Quarter: 2017Q3

REPORT INFORMATION
  Report Type: Report from Study
  Country: US (occurrence: US)
  Receive Date: 20170424
  Receipt Date: 20170728
  Transmission Date: 20171127
  Serious: No
  Sender: FDA-Public Use
  Company Number: US-AMGEN-USASL2017036239

PATIENT
  Age: 68 Year
  Sex: Female

DRUGS (1)
  1. REPATHA [Suspect]
     Active Substance: EVOLOCUMAB
     Indication: PRODUCT USED FOR UNKNOWN INDICATION
     Dosage: 140 MG, Q2WK
     Route: 065
     Dates: start: 201611

REACTIONS (5)
  - Hyperhidrosis [Unknown]
  - Chills [Unknown]
  - Peripheral coldness [Unknown]
  - Flushing [Unknown]
  - Influenza like illness [Unknown]

NARRATIVE: CASE EVENT DATE: 201703
